FAERS Safety Report 16881812 (Version 2)
Quarter: 2023Q2

REPORT INFORMATION
  Report Type: Report from Study
  Country: JP (occurrence: JP)
  Receive Date: 20191003
  Receipt Date: 20230529
  Transmission Date: 20230721
  Serious: Yes (Other)
  Sender: FDA-Public Use
  Company Number: JP-JNJFOC-20190937957

PATIENT

DRUGS (3)
  1. DOXORUBICIN HYDROCHLORIDE [Suspect]
     Active Substance: DOXORUBICIN HYDROCHLORIDE
     Indication: Soft tissue sarcoma
     Dosage: EVERY 3 WEEKS, ON DAYS 1 AND 2
     Route: 065
  2. IFOSFAMIDE [Suspect]
     Active Substance: IFOSFAMIDE
     Indication: Soft tissue sarcoma
     Dosage: EVERY 3 WEEKS, ON DAYS 1-5
     Route: 065
  3. MESNA [Suspect]
     Active Substance: MESNA
     Indication: Soft tissue sarcoma
     Dosage: WAS ADDED AFTER THE ADMINISTRATION OF IFM ON DAYS 1-5
     Route: 065

REACTIONS (6)
  - Ventricular arrhythmia [Unknown]
  - Left ventricular dysfunction [Unknown]
  - Neuropathy peripheral [Unknown]
  - Oedema [Unknown]
  - Product use in unapproved indication [Unknown]
  - Off label use [Unknown]
